FAERS Safety Report 7101611-5 (Version None)
Quarter: 2010Q4

REPORT INFORMATION
  Report Type: 
  Country: None (occurrence: None)
  Receive Date: 20101115
  Receipt Date: 20101102
  Transmission Date: 20110411
  Serious: Yes (Hospitalization, Other)
  Sender: FDA-Public Use
  Company Number: US-AMGEN LTD.-QUU445008

PATIENT

DRUGS (7)
  1. NPLATE [Suspect]
     Indication: IDIOPATHIC THROMBOCYTOPENIC PURPURA
     Dosage: 1 A?G/KG, QWK
     Route: 058
     Dates: start: 20100708, end: 20100708
  2. NPLATE [Suspect]
     Dates: start: 20100701, end: 20100715
  3. DANAZOL [Concomitant]
     Dosage: UNK UNK, UNK
     Dates: start: 20030101
  4. EFFEXOR [Concomitant]
     Dosage: 37.5 MG, QD
     Route: 048
  5. SIMVASTATIN [Concomitant]
     Dosage: 40 MG, QD
     Route: 048
  6. ZYPREXA [Concomitant]
     Dosage: 5 MG, BID
     Route: 048
  7. LANTUS                             /01483501/ [Concomitant]
     Dosage: 45 UNIT, QD
     Route: 058

REACTIONS (6)
  - DEPRESSION [None]
  - DIABETES MELLITUS [None]
  - HYPERTENSION [None]
  - MULTIPLE MYELOMA [None]
  - RENAL FAILURE ACUTE [None]
  - RENAL FAILURE CHRONIC [None]
